FAERS Safety Report 10496312 (Version 1)
Quarter: 2014Q4

REPORT INFORMATION
  Report Type: Spontaneous
  Country: US (occurrence: US)
  Receive Date: 20141003
  Receipt Date: 20141003
  Transmission Date: 20150528
  Serious: No
  Sender: FDA-Public Use
  Company Number: US-009507513-1409USA015181

PATIENT
  Age: 31 Year
  Sex: Male

DRUGS (2)
  1. NUVARING [Suspect]
     Active Substance: ETHINYL ESTRADIOL\ETONOGESTREL
  2. PROPECIA [Concomitant]
     Active Substance: FINASTERIDE

REACTIONS (1)
  - Medical device discomfort [Unknown]
